FAERS Safety Report 25984217 (Version 1)
Quarter: 2025Q4

REPORT INFORMATION
  Report Type: Spontaneous
  Country: US (occurrence: None)
  Receive Date: 20251030
  Receipt Date: 20251030
  Transmission Date: 20260117
  Serious: Yes (Hospitalization)
  Sender: FDA-CTU
  Company Number: None

PATIENT
  Age: 63 Year
  Sex: Female

DRUGS (5)
  1. BIKTARVY [Suspect]
     Active Substance: BICTEGRAVIR SODIUM\EMTRICITABINE\TENOFOVIR ALAFENAMIDE FUMARATE
     Indication: HIV infection
     Dosage: 50 MG DAILY ORAL
     Route: 048
     Dates: start: 20250927
  2. LEVETIRACETAM [Concomitant]
     Active Substance: LEVETIRACETAM
  3. FLUCONAZOLE [Concomitant]
     Active Substance: FLUCONAZOLE
  4. Sulfamethoxazole/Trimethoprim 400/800 [Concomitant]
  5. GABAPENTIN [Concomitant]
     Active Substance: GABAPENTIN

REACTIONS (1)
  - Brain operation [None]

NARRATIVE: CASE EVENT DATE: 20251020
